FAERS Safety Report 6875543-1 (Version None)
Quarter: 2010Q3

REPORT INFORMATION
  Report Type: 
  Country: None (occurrence: None)
  Receive Date: 20100727
  Receipt Date: 20100717
  Transmission Date: 20110219
  Serious: Yes (Death, Other)
  Sender: FDA-Public Use
  Company Number: FR-JNJFOC-20100705537

PATIENT
  Sex: Female

DRUGS (9)
  1. LEUSTAT [Suspect]
     Indication: LANGERHANS' CELL HISTIOCYTOSIS
     Dosage: DOSE OF 9MG/M2/D CONTINUOUSLY FOR 5 CONSECUTIVE DAYS. A DOSE OF 0.3 MG/KG/D FOR BODY WGT BELOW 10 KG
     Route: 042
  2. CYTARABINE [Suspect]
     Indication: LANGERHANS' CELL HISTIOCYTOSIS
     Dosage: DOSE OF 1000 MG/M2/D BY TWO 2 HOUR INTRAVENOUS INFUSIONS
     Route: 042
  3. VINBLASTINE SULFATE [Suspect]
     Indication: LANGERHANS' CELL HISTIOCYTOSIS
     Route: 065
  4. ETOPOSIDE [Suspect]
     Indication: LANGERHANS' CELL HISTIOCYTOSIS
     Route: 065
  5. RETINOIC ACID [Suspect]
     Indication: LANGERHANS' CELL HISTIOCYTOSIS
     Route: 065
  6. CORTICOSTEROID [Suspect]
     Indication: LANGERHANS' CELL HISTIOCYTOSIS
     Route: 065
  7. SULFAMETHOXAZOLE AND TRIMETHOPRIM [Concomitant]
     Indication: ANTIFUNGAL PROPHYLAXIS
     Route: 065
  8. ANTI-EMETICS [Concomitant]
     Indication: VOMITING
     Route: 065
  9. NEUPOGEN [Concomitant]
     Indication: PRODUCT USED FOR UNKNOWN INDICATION
     Route: 065

REACTIONS (3)
  - NEUTROPENIA [None]
  - PSEUDOMONAL SEPSIS [None]
  - PYREXIA [None]
